FAERS Safety Report 14594605 (Version 1)
Quarter: 2018Q1

REPORT INFORMATION
  Report Type: Spontaneous
  Country: US (occurrence: US)
  Receive Date: 20180302
  Receipt Date: 20180302
  Transmission Date: 20180509
  Serious: No
  Sender: FDA-Public Use
  Company Number: US-PERRIGO-17US002341

PATIENT
  Age: 10 Year
  Sex: Female
  Weight: 40.36 kg

DRUGS (1)
  1. IBUPROFEN. [Suspect]
     Active Substance: IBUPROFEN
     Indication: HEADACHE
     Dosage: 200 MG, SINGLE
     Route: 048
     Dates: start: 20170308, end: 20170308

REACTIONS (8)
  - Feeling abnormal [Recovered/Resolved]
  - Eye pruritus [Recovering/Resolving]
  - Hypersensitivity [Recovering/Resolving]
  - Eyelid oedema [Unknown]
  - Chest pain [Recovered/Resolved]
  - Dyspnoea [Recovered/Resolved]
  - Swelling face [Recovering/Resolving]
  - Urticaria [Recovering/Resolving]

NARRATIVE: CASE EVENT DATE: 20170308
